FAERS Safety Report 13400543 (Version 1)
Quarter: 2017Q2

REPORT INFORMATION
  Report Type: Spontaneous
  Country: US (occurrence: US)
  Receive Date: 20170404
  Receipt Date: 20170404
  Transmission Date: 20170830
  Serious: No
  Sender: FDA-Public Use
  Company Number: US-JNJFOC-20170128266

PATIENT
  Age: 85 Year
  Sex: Male
  Weight: 73.94 kg

DRUGS (7)
  1. ASPIRIN. [Concomitant]
     Active Substance: ASPIRIN
     Indication: ANTICOAGULANT THERAPY
     Route: 065
  2. NIZORAL A-D [Suspect]
     Active Substance: KETOCONAZOLE
     Indication: DANDRUFF
     Dosage: EVERY 3 TO 4 DAYS
     Route: 061
     Dates: end: 20170128
  3. NIZORAL A-D [Suspect]
     Active Substance: KETOCONAZOLE
     Route: 061
  4. LUMIGAN [Concomitant]
     Active Substance: BIMATOPROST
     Indication: GLAUCOMA
     Dosage: 1 DROP RIGHT EYE (FROM 10 YEARS)
     Route: 065
  5. AZOPT [Concomitant]
     Active Substance: BRINZOLAMIDE
     Indication: GLAUCOMA
     Dosage: FOR 10 YEARS
     Route: 047
  6. SELSUN BLUE [Concomitant]
     Active Substance: SELENIUM SULFIDE
     Indication: DANDRUFF
     Dosage: 5 YEARS
     Route: 065
  7. ADVIL [Concomitant]
     Active Substance: IBUPROFEN
     Indication: PAIN
     Route: 065

REACTIONS (2)
  - Seborrhoea [Recovering/Resolving]
  - Acne [Recovering/Resolving]
